FAERS Safety Report 12407165 (Version 2)
Quarter: 2016Q3

REPORT INFORMATION
  Report Type: Spontaneous
  Country: US (occurrence: US)
  Receive Date: 20160526
  Receipt Date: 20160907
  Transmission Date: 20161109
  Serious: No
  Sender: FDA-Public Use
  Company Number: US-PFIZER INC-2016243551

PATIENT
  Age: 74 Year
  Sex: Female
  Weight: 59 kg

DRUGS (4)
  1. SKELAXIN [Suspect]
     Active Substance: METAXALONE
     Indication: OSTEOARTHRITIS
  2. SKELAXIN [Suspect]
     Active Substance: METAXALONE
     Indication: FIBROMYALGIA
  3. SKELAXIN [Suspect]
     Active Substance: METAXALONE
     Indication: OSTEOPOROSIS
  4. SKELAXIN [Suspect]
     Active Substance: METAXALONE
     Indication: PAIN
     Dosage: 800 MG, 3X/DAY
     Route: 048

REACTIONS (2)
  - Drug effect incomplete [Unknown]
  - Product use issue [Unknown]
